FAERS Safety Report 4864222-8 (Version None)
Quarter: 2005Q4

REPORT INFORMATION
  Report Type: 
  Country: None (occurrence: None)
  Receive Date: 20051220
  Receipt Date: 20051220
  Transmission Date: 20060501
  Serious: Yes (Death)
  Sender: FDA-Public Use
  Company Number: None

PATIENT
  Age: 81 Year
  Sex: Male
  Weight: 121 kg

DRUGS (1)
  1. FEROGRAD-500 [Suspect]
     Indication: ANAEMIA
     Dosage: 1 TABLET TID PO
     Route: 048
     Dates: start: 20050928, end: 20051001

REACTIONS (4)
  - ANGIONEUROTIC OEDEMA [None]
  - DIFFICULT TO WEAN FROM VENTILATOR [None]
  - INTUBATION COMPLICATION [None]
  - WRONG TECHNIQUE IN DRUG USAGE PROCESS [None]
